FAERS Safety Report 9910078 (Version 1)
Quarter: 2014Q1

REPORT INFORMATION
  Report Type: Spontaneous
  Country: US (occurrence: None)
  Receive Date: 20140212
  Receipt Date: 20140212
  Transmission Date: 20141002
  Serious: Yes (Other)
  Sender: FDA-Public Use
  Company Number: 001660658A

PATIENT
  Age: 32 Year
  Sex: Female

DRUGS (3)
  1. MEANINGFUL BEAUTY CINDY CRAWFORD ANTIOXIDANT SPF 20 UVA/UVB [Suspect]
     Dosage: TWICE DAILY DERMAL
  2. MB* SKIN BRIGHTENING DECOLLETE+NECK TREATMENT SPF 15 [Suspect]
     Dosage: TWICE DAILY DERMAL
  3. STEROID INJECTIONS [Concomitant]

REACTIONS (3)
  - Urticaria [None]
  - Dyspnoea [None]
  - Hypersensitivity [None]
